FAERS Safety Report 14971102 (Version 2)
Quarter: 2018Q2

REPORT INFORMATION
  Report Type: Spontaneous
  Country: JP (occurrence: JP)
  Receive Date: 20180604
  Receipt Date: 20180608
  Transmission Date: 20180711
  Serious: Yes (Hospitalization)
  Sender: FDA-Public Use
  Company Number: JP-MITSUBISHI TANABE PHARMA CORPORATION-MTPC2018-0012013

PATIENT
  Age: 71 Year
  Sex: Male

DRUGS (3)
  1. ASPIRIN. [Suspect]
     Active Substance: ASPIRIN
     Indication: SPINAL CORD INFARCTION
     Route: 065
  2. RADICUT [Suspect]
     Active Substance: EDARAVONE
     Indication: SPINAL CORD INFARCTION
     Route: 065
  3. ADRENAL HORMONE PREPARATIONS [Suspect]
     Active Substance: UNSPECIFIED INGREDIENT
     Indication: SPINAL CORD INFARCTION
     Route: 065

REACTIONS (1)
  - Haemorrhagic infarction [Unknown]
